FAERS Safety Report 5237500-0 (Version None)
Quarter: 2007Q1

REPORT INFORMATION
  Report Type: 
  Country: None (occurrence: None)
  Receive Date: 20070213
  Receipt Date: 20070203
  Transmission Date: 20070707
  Serious: Yes (Other)
  Sender: FDA-Public Use
  Company Number: US-PFIZER INC-2006125405

PATIENT
  Sex: Female

DRUGS (2)
  1. SOMAVERT [Suspect]
     Indication: ACROMEGALY
     Route: 058
     Dates: start: 20060707, end: 20060801
  2. DOSTINEX [Concomitant]

REACTIONS (4)
  - HEADACHE [None]
  - HYPERSENSITIVITY [None]
  - MYALGIA [None]
  - RASH [None]
